FAERS Safety Report 16818913 (Version 1)
Quarter: 2019Q3

REPORT INFORMATION
  Report Type: Report from Study
  Country: BR (occurrence: BR)
  Receive Date: 20190917
  Receipt Date: 20190917
  Transmission Date: 20191005
  Serious: Yes (Death)
  Sender: FDA-Public Use
  Company Number: PHHY2019BR214987

PATIENT
  Sex: Male

DRUGS (1)
  1. RITALIN LA [Suspect]
     Active Substance: METHYLPHENIDATE HYDROCHLORIDE
     Indication: PRODUCT USED FOR UNKNOWN INDICATION
     Route: 065

REACTIONS (2)
  - Influenza [Not Recovered/Not Resolved]
  - Pneumonia [Fatal]

NARRATIVE: CASE EVENT DATE: 20181127
